FAERS Safety Report 6019989-2 (Version None)
Quarter: 2008Q4

REPORT INFORMATION
  Report Type: 
  Country: None (occurrence: None)
  Receive Date: 20081223
  Receipt Date: 20081211
  Transmission Date: 20090506
  Serious: Yes (Hospitalization)
  Sender: FDA-Public Use
  Company Number: 232909K08USA

PATIENT
  Age: 59 Year
  Sex: Female

DRUGS (1)
  1. REBIF [Suspect]
     Indication: MULTIPLE SCLEROSIS
     Dosage: 44 MCG, 3 IN 1 WEEKS, SUBCUTANEOUS
     Route: 058
     Dates: start: 20041210

REACTIONS (6)
  - CATHETER SITE INFECTION [None]
  - CHOLECYSTITIS INFECTIVE [None]
  - KIDNEY ENLARGEMENT [None]
  - PURULENCE [None]
  - RENAL ATROPHY [None]
  - RENAL FAILURE [None]
